FAERS Safety Report 5535450-3 (Version None)
Quarter: 2007Q4

REPORT INFORMATION
  Report Type: 
  Country: None (occurrence: None)
  Receive Date: 20071204
  Receipt Date: 20071204
  Transmission Date: 20080405
  Serious: No
  Sender: FDA-Public Use
  Company Number: None

PATIENT
  Age: 5 Year
  Sex: Female
  Weight: 25 kg

DRUGS (2)
  1. PREDNISOLONE [Suspect]
     Indication: ASTHMA
     Dosage: 2 TEASPOONS  BID  PO
     Route: 048
     Dates: start: 20071125, end: 20071128
  2. PREDNISOLONE [Suspect]
     Indication: CONDITION AGGRAVATED
     Dosage: 2 TEASPOONS  BID  PO
     Route: 048
     Dates: start: 20071125, end: 20071128

REACTIONS (2)
  - HYPOAESTHESIA [None]
  - PRURITUS [None]
